FAERS Safety Report 9672514 (Version 1)
Quarter: 2013Q4

REPORT INFORMATION
  Report Type: Spontaneous
  Country: US (occurrence: US)
  Receive Date: 20131106
  Receipt Date: 20131106
  Transmission Date: 20140711
  Serious: Yes (Other)
  Sender: FDA-Public Use
  Company Number: US-RB-060176-13

PATIENT
  Age: 24 Year
  Sex: Female

DRUGS (1)
  1. SUBOXONE FILM [Suspect]
     Indication: PRODUCT USED FOR UNKNOWN INDICATION
     Dosage: SUBOXONE FILM; DOSING DETAILS UNKNOWN
     Route: 065

REACTIONS (5)
  - Road traffic accident [Recovered/Resolved]
  - Limb crushing injury [Recovered/Resolved]
  - Femur fracture [Recovered/Resolved]
  - Rib fracture [Recovered/Resolved]
  - Back injury [Recovered/Resolved]
